FAERS Safety Report 10011129 (Version 1)
Quarter: 2014Q1

REPORT INFORMATION
  Report Type: Spontaneous
  Country: JP (occurrence: JP)
  Receive Date: 20140314
  Receipt Date: 20140314
  Transmission Date: 20141002
  Serious: Yes (Death, Other)
  Sender: FDA-Public Use
  Company Number: JP-CELGENEUS-087-21880-14030509

PATIENT
  Sex: 0

DRUGS (2)
  1. REVLIMID [Suspect]
     Indication: PLASMA CELL MYELOMA
     Dosage: 10-25 MG
     Route: 048
  2. DEXAMETHASONE [Suspect]
     Indication: PLASMA CELL MYELOMA
     Dosage: 20-40 MG
     Route: 065

REACTIONS (9)
  - Intra-abdominal haemorrhage [Fatal]
  - Infection [Fatal]
  - Plasma cell myeloma [Fatal]
  - Full blood count decreased [Unknown]
  - Pneumonia [Unknown]
  - Somnolence [Unknown]
  - Neuropathy peripheral [Unknown]
  - Constipation [Unknown]
  - Malaise [Unknown]
